FAERS Safety Report 19887167 (Version 1)
Quarter: 2021Q3

REPORT INFORMATION
  Report Type: Spontaneous
  Country: US (occurrence: US)
  Receive Date: 20210927
  Receipt Date: 20210927
  Transmission Date: 20211014
  Serious: No
  Sender: FDA-Public Use
  Company Number: US-BAUSCH-BL-2021-032092

PATIENT
  Sex: Male

DRUGS (2)
  1. VYZULTA [Concomitant]
     Active Substance: LATANOPROSTENE BUNOD
     Indication: GLAUCOMA
     Route: 047
  2. BRIMONIDINE TARTRATE OPHTHALMIC SOLUTION 0.2% [Suspect]
     Active Substance: BRIMONIDINE TARTRATE
     Indication: INTRAOCULAR PRESSURE INCREASED
     Route: 047

REACTIONS (1)
  - Therapeutic product effect delayed [Unknown]
